FAERS Safety Report 9550044 (Version 2)
Quarter: 2014Q1

REPORT INFORMATION
  Report Type: Spontaneous
  Country: US (occurrence: US)
  Receive Date: 20130924
  Receipt Date: 20140204
  Transmission Date: 20141002
  Serious: Yes (Other)
  Sender: FDA-Public Use
  Company Number: US-UCBSA-097805

PATIENT
  Age: 39 Year
  Sex: Male
  Weight: 68.03 kg

DRUGS (7)
  1. KEPPRA [Suspect]
     Indication: CONVULSION
     Dates: start: 2003
  2. KEPPRA [Suspect]
     Indication: CONVULSION
  3. GENERIC KEPPRA [Suspect]
     Indication: EPILEPSY
     Dates: start: 2003, end: 2003
  4. GENERIC KEPPRA [Suspect]
     Indication: EPILEPSY
     Dosage: 3 PILLS AT 11:00 AM AND 3 PILLS AT 11:00 PM
     Route: 048
     Dates: start: 2003
  5. GENERIC KEPPRA [Suspect]
     Indication: EPILEPSY
     Dosage: 5 PILLS IN AM AND 5 PILLS IN PM
     Route: 048
     Dates: start: 2013
  6. GENERIC KEPPRA [Suspect]
     Indication: EPILEPSY
     Dosage: 3 PILLS AT 11:00 AM AND 3 PILLS AT 11:00 PM
     Route: 048
  7. AMITRIPTYLINE [Concomitant]
     Indication: ABNORMAL SLEEP-RELATED EVENT
     Dosage: AT NIGHT 10:30 PM
     Route: 048
     Dates: start: 2004

REACTIONS (7)
  - Convulsion [Not Recovered/Not Resolved]
  - Laceration [Unknown]
  - Contusion [Unknown]
  - Amnesia [Unknown]
  - Overdose [Unknown]
  - Fall [Unknown]
  - Joint injury [Unknown]
